FAERS Safety Report 14381173 (Version 13)
Quarter: 2019Q1

REPORT INFORMATION
  Report Type: Spontaneous
  Country: CA (occurrence: CA)
  Receive Date: 20180112
  Receipt Date: 20190228
  Transmission Date: 20190417
  Serious: Yes (Other)
  Sender: FDA-Public Use
  Company Number: CA-CELLTRION INC.-2017CA014278

PATIENT

DRUGS (12)
  1. INFLECTRA [Suspect]
     Active Substance: INFLIXIMAB-DYYB
     Indication: COLITIS ULCERATIVE
     Dosage: 400 MG, (EVERY (Q) 0, 2, 6 WEEKS, THEN EVERY 8 WEEKS)
     Route: 042
     Dates: start: 20170901
  2. INFLECTRA [Suspect]
     Active Substance: INFLIXIMAB-DYYB
     Dosage: 400 MG, (EVERY (Q) 0, 2, 6 WEEKS, THEN EVERY 8 WEEKS)
     Route: 042
     Dates: start: 20171103
  3. INFLECTRA [Suspect]
     Active Substance: INFLIXIMAB-DYYB
     Dosage: 400 MG, (EVERY 0, 2, 6 WEEKS, THEN EVERY 8 WEEKS)
     Route: 042
     Dates: start: 20180319
  4. INFLECTRA [Suspect]
     Active Substance: INFLIXIMAB-DYYB
     Dosage: 400 MG, (EVERY 4 WEEKS)
     Route: 042
     Dates: start: 20180814
  5. INFLECTRA [Suspect]
     Active Substance: INFLIXIMAB-DYYB
     Dosage: 400 MG, (EVERY 4 WEEKS)
     Route: 042
     Dates: start: 20180917
  6. INFLECTRA [Suspect]
     Active Substance: INFLIXIMAB-DYYB
     Dosage: 400 MG, (EVERY 4 WEEKS)
     Route: 042
     Dates: start: 20190213
  7. INFLECTRA [Suspect]
     Active Substance: INFLIXIMAB-DYYB
     Dosage: 400 MG, (EVERY 4 WEEKS)
     Route: 042
     Dates: start: 20190116
  8. PREDNISONE. [Concomitant]
     Active Substance: PREDNISONE
     Dosage: 40 MG, DAILY
     Route: 048
     Dates: start: 20170718
  9. ASACOL [Concomitant]
     Active Substance: MESALAMINE
     Dosage: UNK UNK, TID
     Route: 048
     Dates: start: 1998
  10. INFLECTRA [Suspect]
     Active Substance: INFLIXIMAB-DYYB
     Dosage: 5 MG/KG, (EVERY 4 WEEKS)
     Route: 042
     Dates: start: 20180628
  11. INFLECTRA [Suspect]
     Active Substance: INFLIXIMAB-DYYB
     Dosage: 400 MG, (EVERY (Q) 0, 2, 6 WEEKS, THEN EVERY 8 WEEKS)
     Route: 042
     Dates: start: 20180122
  12. INFLECTRA [Suspect]
     Active Substance: INFLIXIMAB-DYYB
     Dosage: 400 MG, (EVERY 4 WEEKS)
     Route: 042
     Dates: start: 20181121

REACTIONS (32)
  - Hyperhidrosis [Unknown]
  - Weight increased [Recovered/Resolved]
  - Depressed mood [Unknown]
  - Pallor [Unknown]
  - Vomiting [Unknown]
  - Drug specific antibody present [Unknown]
  - Condition aggravated [Unknown]
  - Unresponsive to stimuli [Unknown]
  - Influenza [Unknown]
  - Confusional state [Unknown]
  - Incoherent [Unknown]
  - Seizure [Unknown]
  - Eye movement disorder [Unknown]
  - Weight decreased [Unknown]
  - Nausea [Unknown]
  - Heart rate decreased [Unknown]
  - Loss of consciousness [Unknown]
  - Muscle rigidity [Unknown]
  - Abnormal behaviour [Unknown]
  - Fall [Unknown]
  - Malaise [Recovered/Resolved]
  - Presyncope [Recovered/Resolved]
  - Drug level decreased [Unknown]
  - Blood pressure decreased [Unknown]
  - Suicidal ideation [Unknown]
  - Product use issue [Unknown]
  - Lethargy [Unknown]
  - Fatigue [Unknown]
  - Dizziness [Unknown]
  - Ligament sprain [Unknown]
  - Product dose omission [Unknown]
  - Dehydration [Unknown]

NARRATIVE: CASE EVENT DATE: 201710
